FAERS Safety Report 5002212-5 (Version None)
Quarter: 2006Q2

REPORT INFORMATION
  Report Type: 
  Country: None (occurrence: None)
  Receive Date: 20060510
  Receipt Date: 20060427
  Transmission Date: 20061013
  Serious: Yes (Other)
  Sender: FDA-Public Use
  Company Number: 2006057445

PATIENT
  Sex: Female

DRUGS (6)
  1. DILANTIN KAPSEAL [Suspect]
     Indication: CONVULSION
     Dates: start: 19820101
  2. LYRICA [Suspect]
     Indication: CENTRAL PAIN SYNDROME
     Dosage: 75 MG (75 MG, 1 IN 1 D)
     Dates: start: 20060331
  3. TEGRETOL [Suspect]
     Indication: CONVULSION
     Dates: start: 19820101
  4. DIAZEPAM [Concomitant]
  5. OXYCODONE (OXYCODONE) [Concomitant]
  6. PHENOBARBITAL TAB [Concomitant]

REACTIONS (6)
  - CENTRAL PAIN SYNDROME [None]
  - CONDITION AGGRAVATED [None]
  - DEPRESSION [None]
  - LETHARGY [None]
  - POLLAKIURIA [None]
  - SOMNOLENCE [None]
